FAERS Safety Report 22157303 (Version 3)
Quarter: 2023Q2

REPORT INFORMATION
  Report Type: Report from Study
  Country: CN (occurrence: None)
  Receive Date: 20230330
  Receipt Date: 20230508
  Transmission Date: 20230721
  Serious: Yes (Hospitalization)
  Sender: FDA-Public Use
  Company Number: 2023A070092

PATIENT
  Age: 11236 Day
  Sex: Male
  Weight: 92.5 kg

DRUGS (1)
  1. ESOMEPRAZOLE SODIUM [Suspect]
     Active Substance: ESOMEPRAZOLE SODIUM
     Indication: Upper gastrointestinal haemorrhage
     Route: 041
     Dates: start: 20230131, end: 20230203

REACTIONS (1)
  - Gouty arthritis [Recovering/Resolving]

NARRATIVE: CASE EVENT DATE: 20230206
